FAERS Safety Report 11222862 (Version 2)
Quarter: 2015Q4

REPORT INFORMATION
  Report Type: Spontaneous
  Country: US (occurrence: US)
  Receive Date: 20150626
  Receipt Date: 20151001
  Transmission Date: 20160304
  Serious: No
  Sender: FDA-Public Use
  Company Number: US-KERYX BIOPHARMACEUTICALS, INC.-2015US000955

PATIENT
  Age: 52 Year
  Sex: Male

DRUGS (1)
  1. AURYXIA [Suspect]
     Active Substance: TETRAFERRIC TRICITRATE DECAHYDRATE
     Indication: HYPERPHOSPHATAEMIA
     Dosage: 2 TAB, TID WITH MEALS
     Route: 048
     Dates: start: 201505, end: 201505

REACTIONS (2)
  - Faeces discoloured [Recovered/Resolved]
  - Abnormal faeces [Recovered/Resolved]

NARRATIVE: CASE EVENT DATE: 201505
